FAERS Safety Report 16757140 (Version 2)
Quarter: 2019Q3

REPORT INFORMATION
  Report Type: Spontaneous
  Country: FR (occurrence: FR)
  Receive Date: 20190829
  Receipt Date: 20190903
  Transmission Date: 20191005
  Serious: Yes (Other)
  Sender: FDA-Public Use
  Company Number: FR-ALSI-201900363

PATIENT
  Age: 79 Year
  Sex: Male

DRUGS (1)
  1. OXYGEN. [Suspect]
     Active Substance: OXYGEN
     Indication: ASPIRATION
     Route: 055

REACTIONS (3)
  - Oxygen saturation decreased [Recovered/Resolved]
  - Accidental underdose [Recovered/Resolved]
  - Product quality issue [Recovered/Resolved]
